FAERS Safety Report 18477976 (Version 1)
Quarter: 2020Q4

REPORT INFORMATION
  Report Type: Spontaneous
  Country: US (occurrence: US)
  Receive Date: 20201108
  Receipt Date: 20201108
  Transmission Date: 20210114
  Serious: Yes (Hospitalization)
  Sender: FDA-Public Use
  Company Number: US-009507513-2011USA000629

PATIENT
  Age: 57 Year
  Sex: Male

DRUGS (6)
  1. PRINIVIL [Suspect]
     Active Substance: LISINOPRIL
  2. VIOXX [Suspect]
     Active Substance: ROFECOXIB
     Indication: SPONDYLITIS
     Dosage: ALSO A 25MG TABLET DAILY
     Dates: start: 20000622, end: 20031206
  3. VIOXX [Suspect]
     Active Substance: ROFECOXIB
     Indication: ARTHRITIS
  4. FLEXERIL [Concomitant]
     Active Substance: CYCLOBENZAPRINE HYDROCHLORIDE
  5. VICODIN [Concomitant]
     Active Substance: ACETAMINOPHEN\HYDROCODONE BITARTRATE
  6. LORTAB [Concomitant]
     Active Substance: ACETAMINOPHEN\HYDROCODONE BITARTRATE

REACTIONS (28)
  - Arterial thrombosis [Unknown]
  - Dizziness [Unknown]
  - Sleep apnoea syndrome [Unknown]
  - Blood potassium decreased [Unknown]
  - Sinus tachycardia [Unknown]
  - Chest discomfort [Unknown]
  - Cholelithiasis [Unknown]
  - Acute myocardial infarction [Unknown]
  - Atelectasis [Unknown]
  - Cardiac disorder [Unknown]
  - Congestive cardiomyopathy [Unknown]
  - Diverticulum [Unknown]
  - Epigastric discomfort [Unknown]
  - Hypertension [Unknown]
  - Polyp [Unknown]
  - Atrial fibrillation [Unknown]
  - Bradycardia [Unknown]
  - Cardiac arrest [Unknown]
  - Diabetes mellitus [Unknown]
  - Urticaria [Unknown]
  - Hyperlipidaemia [Unknown]
  - Increased tendency to bruise [Unknown]
  - Somnolence [Unknown]
  - Diaphragmatic rupture [Unknown]
  - Leukocytosis [Unknown]
  - Nasal congestion [Unknown]
  - Spinal disorder [Unknown]
  - Carotid bruit [Unknown]

NARRATIVE: CASE EVENT DATE: 20031206
